FAERS Safety Report 9410230 (Version 1)
Quarter: 2013Q3

REPORT INFORMATION
  Report Type: Spontaneous
  Country: HK (occurrence: HK)
  Receive Date: 20130719
  Receipt Date: 20130719
  Transmission Date: 20140515
  Serious: No
  Sender: FDA-Public Use
  Company Number: HK-009507513-1307HKG002938

PATIENT
  Sex: Female

DRUGS (1)
  1. COPPERTONE [Suspect]
     Dosage: 118 ML SPF 50, WATERBABIES
     Route: 061

REACTIONS (1)
  - Hypersensitivity [Unknown]
